FAERS Safety Report 13406327 (Version 1)
Quarter: 2017Q2

REPORT INFORMATION
  Report Type: Spontaneous
  Country: US (occurrence: US)
  Receive Date: 20170405
  Receipt Date: 20170405
  Transmission Date: 20170830
  Serious: Yes (Other)
  Sender: FDA-Public Use
  Company Number: US-THE MENTHOLATUM COMPANY-1065034

PATIENT
  Age: 18 Year
  Sex: Female
  Weight: 48.64 kg

DRUGS (1)
  1. OXY RAPID TREATMENT FACE WASH SENSITIVE SKIN MAXIMUM ACTION [Suspect]
     Active Substance: BENZOYL PEROXIDE
     Indication: ACNE
     Route: 061
     Dates: start: 20170217, end: 20170220

REACTIONS (3)
  - Skin exfoliation [None]
  - Skin irritation [Recovering/Resolving]
  - Dry skin [None]

NARRATIVE: CASE EVENT DATE: 20170217
